FAERS Safety Report 11330122 (Version 2)
Quarter: 2015Q3

REPORT INFORMATION
  Report Type: Spontaneous
  Country: IT (occurrence: IT)
  Receive Date: 20150803
  Receipt Date: 20150806
  Transmission Date: 20151125
  Serious: Yes (Hospitalization)
  Sender: FDA-Public Use
  Company Number: IT-BIOGENIDEC-2015BI107503

PATIENT
  Age: 41 Year
  Sex: Female

DRUGS (1)
  1. TYSABRI [Suspect]
     Active Substance: NATALIZUMAB
     Indication: MULTIPLE SCLEROSIS

REACTIONS (7)
  - Hepatosplenomegaly [Unknown]
  - Iron deficiency anaemia [Unknown]
  - Portal vein thrombosis [Unknown]
  - Gastrointestinal oedema [Unknown]
  - Gastritis haemorrhagic [Unknown]
  - Varices oesophageal [Unknown]
  - Thrombocytopenia [Unknown]
